FAERS Safety Report 8881981 (Version 2)
Quarter: 2013Q2

REPORT INFORMATION
  Report Type: Spontaneous
  Country: US (occurrence: US)
  Receive Date: 20121101
  Receipt Date: 20130425
  Transmission Date: 20140414
  Serious: Yes (Hospitalization)
  Sender: FDA-Public Use
  Company Number: PHHY2012US097030

PATIENT
  Age: 50 Year
  Sex: Female

DRUGS (5)
  1. FLUOROURACIL [Suspect]
     Indication: COLON CANCER
     Dosage: 400 MG/M2, UNK
     Route: 040
  2. FLUOROURACIL [Suspect]
     Dosage: 2400 MG/M2, UNK
  3. LEUCOVORIN [Concomitant]
     Indication: COLON CANCER
     Dosage: 400 MG/M2, OVER 2 HOURS
     Route: 042
  4. OXALIPLATIN [Concomitant]
     Indication: COLON CANCER
     Dosage: 85 MG/M2, ON DAY 1
     Route: 042
  5. BEVACIZUMAB [Concomitant]
     Dosage: 5 MG/KG, EVERY 2 WEEK

REACTIONS (19)
  - Febrile neutropenia [Recovered/Resolved]
  - Throat tightness [Recovered/Resolved]
  - Posterior reversible encephalopathy syndrome [Recovered/Resolved]
  - Alopecia [Recovered/Resolved]
  - Tunnel vision [Recovered/Resolved]
  - Dysphagia [Recovering/Resolving]
  - Mucosal inflammation [Recovered/Resolved]
  - Palmar-plantar erythrodysaesthesia syndrome [Recovered/Resolved]
  - Photophobia [Recovered/Resolved]
  - Gait disturbance [Recovered/Resolved]
  - Muscular weakness [Recovered/Resolved]
  - Dysarthria [Recovering/Resolving]
  - Ataxia [Recovering/Resolving]
  - Cerebellar syndrome [Recovering/Resolving]
  - Memory impairment [Recovering/Resolving]
  - Aphasia [Recovering/Resolving]
  - Dysphonia [Recovered/Resolved]
  - Skin exfoliation [Recovered/Resolved]
  - Paraesthesia [Recovered/Resolved]
